FAERS Safety Report 4934245-9 (Version None)
Quarter: 2006Q1

REPORT INFORMATION
  Report Type: 
  Country: None (occurrence: None)
  Receive Date: 20060303
  Receipt Date: 20060222
  Transmission Date: 20060701
  Serious: Yes (Hospitalization)
  Sender: FDA-Public Use
  Company Number: 2006026581

PATIENT
  Age: 75 Year
  Sex: Male

DRUGS (6)
  1. NIFEDIPINE [Suspect]
     Indication: HYPERTENSION
     Dosage: 60 MG, ORAL
     Route: 048
     Dates: end: 20060127
  2. ISMO [Concomitant]
  3. ATENOLOL [Concomitant]
  4. BENDROFLUAZIDE (BENDROFLUMETHIAZIDE) [Concomitant]
  5. SIMVASTATIN [Concomitant]
  6. INDOMETHACIN [Concomitant]

REACTIONS (2)
  - DIZZINESS [None]
  - ORTHOSTATIC HYPOTENSION [None]
